FAERS Safety Report 7497021-1 (Version None)
Quarter: 2011Q2

REPORT INFORMATION
  Report Type: 
  Country: None (occurrence: None)
  Receive Date: 20110523
  Receipt Date: 20110517
  Transmission Date: 20111010
  Serious: Yes (Other)
  Sender: FDA-Public Use
  Company Number: JP-ABBOTT-11P-087-0721813-00

PATIENT
  Sex: Male
  Weight: 51.4 kg

DRUGS (6)
  1. HUMIRA [Suspect]
     Indication: CROHN'S DISEASE
     Dosage: 160 MG
     Route: 058
     Dates: start: 20110409, end: 20110409
  2. MESALAMINE [Concomitant]
     Indication: CROHN'S DISEASE
     Route: 048
     Dates: start: 20110307
  3. HUMIRA [Suspect]
     Route: 058
     Dates: start: 20110507
  4. HUMIRA [Suspect]
     Route: 058
     Dates: start: 20110423, end: 20110423
  5. AZATHIOPRINE [Concomitant]
     Indication: CROHN'S DISEASE
     Route: 048
     Dates: start: 20110311
  6. SCOPOLAMINE BUTYLBROMIDE [Concomitant]
     Indication: PRODUCT USED FOR UNKNOWN INDICATION
     Route: 048
     Dates: start: 20110307, end: 20110422

REACTIONS (1)
  - RED BLOOD CELL COUNT DECREASED [None]
